FAERS Safety Report 4759528-7 (Version None)
Quarter: 2005Q3

REPORT INFORMATION
  Report Type: 
  Country: None (occurrence: None)
  Receive Date: 20050831
  Receipt Date: 20050822
  Transmission Date: 20060218
  Serious: Yes (Hospitalization, Other)
  Sender: FDA-Public Use
  Company Number: 2005119595

PATIENT
  Sex: Male

DRUGS (1)
  1. CELEBREX [Suspect]
     Indication: ILL-DEFINED DISORDER
     Dosage: 2 IN 1 D

REACTIONS (5)
  - CEREBROVASCULAR ACCIDENT [None]
  - HEADACHE [None]
  - MYOCARDIAL INFARCTION [None]
  - VISION BLURRED [None]
  - VISUAL DISTURBANCE [None]
